FAERS Safety Report 11779403 (Version 1)
Quarter: 2015Q4

REPORT INFORMATION
  Report Type: Spontaneous
  Country: CA (occurrence: CA)
  Receive Date: 20151125
  Receipt Date: 20151125
  Transmission Date: 20160304
  Serious: Yes (Life-Threatening, Hospitalization, Disabling, Other)
  Sender: FDA-Public Use
  Company Number: CA-TEVA-612281ACC

PATIENT
  Age: 41 Year
  Sex: Female

DRUGS (6)
  1. RABEPRAZOLE [Concomitant]
     Active Substance: RABEPRAZOLE
  2. FLUOXETINE [Suspect]
     Active Substance: FLUOXETINE HYDROCHLORIDE
     Indication: PRODUCT USED FOR UNKNOWN INDICATION
     Dosage: 60 MILLIGRAM DAILY;
     Route: 065
  3. FELODIPINE. [Concomitant]
     Active Substance: FELODIPINE
  4. SELON-E [Concomitant]
  5. DOXEPIN HYDROCHLORIDE. [Suspect]
     Active Substance: DOXEPIN HYDROCHLORIDE
     Indication: PRODUCT USED FOR UNKNOWN INDICATION
     Route: 065
  6. HYDROCHLOROTHIAZIDE. [Concomitant]
     Active Substance: HYDROCHLOROTHIAZIDE

REACTIONS (9)
  - Serotonin syndrome [Not Recovered/Not Resolved]
  - Pain [Not Recovered/Not Resolved]
  - Speech disorder [Not Recovered/Not Resolved]
  - Musculoskeletal stiffness [Not Recovered/Not Resolved]
  - Loss of consciousness [Not Recovered/Not Resolved]
  - Dyspnoea [Not Recovered/Not Resolved]
  - Seizure [Not Recovered/Not Resolved]
  - Dysphagia [Not Recovered/Not Resolved]
  - Nerve injury [Not Recovered/Not Resolved]
